FAERS Safety Report 20960825 (Version 7)
Quarter: 2022Q3

REPORT INFORMATION
  Report Type: Report from Study
  Country: US (occurrence: US)
  Receive Date: 20220615
  Receipt Date: 20220815
  Transmission Date: 20221026
  Serious: Yes (Hospitalization)
  Sender: FDA-Public Use
  Company Number: US-NOVARTISTESTPH-NVSC2022US136808

PATIENT
  Age: 65 Year
  Sex: Female
  Weight: 75.4 kg

DRUGS (4)
  1. PIQRAY [Suspect]
     Active Substance: ALPELISIB
     Indication: Breast cancer
     Dosage: 300 MG, QD
     Route: 048
     Dates: start: 20220609
  2. PIQRAY [Suspect]
     Active Substance: ALPELISIB
     Dosage: 300 MG (TAKE 300MG (TWO 150MG TABLETS) BY MOUTH DAILY)
     Route: 048
  3. PIQRAY [Suspect]
     Active Substance: ALPELISIB
     Dosage: 300 MG
     Route: 048
     Dates: start: 20220609, end: 20220711
  4. AFINITOR [Suspect]
     Active Substance: EVEROLIMUS
     Indication: Breast cancer
     Dosage: UNK
     Route: 065

REACTIONS (6)
  - Renal impairment [Recovered/Resolved]
  - Rash [Recovered/Resolved]
  - Hyperglycaemia [Not Recovered/Not Resolved]
  - Hepatic function abnormal [Recovered/Resolved]
  - Taste disorder [Not Recovered/Not Resolved]
  - Decreased appetite [Not Recovered/Not Resolved]

NARRATIVE: CASE EVENT DATE: 20220707
